FAERS Safety Report 20607454 (Version 1)
Quarter: 2022Q1

REPORT INFORMATION
  Report Type: Spontaneous
  Country: US (occurrence: None)
  Receive Date: 20220316
  Receipt Date: 20220316
  Transmission Date: 20220424
  Serious: No
  Sender: FDA-Public Use
  Company Number: None

PATIENT
  Age: 66 Year
  Sex: Female
  Weight: 87.0 kg

DRUGS (12)
  1. CYCLOSPORINE [Suspect]
     Active Substance: CYCLOSPORINE
     Indication: Lymphocytic leukaemia
     Dosage: FREQUENCY : TWICE A DAY;?
     Route: 048
  2. CYCLOSPORINE [Suspect]
     Active Substance: CYCLOSPORINE
     Dosage: FREQUENCY : TWICE A DAY;?
     Route: 048
  3. Amlodipine Besy-Benazepril [Concomitant]
  4. CYCLOBENZAPRINE HYDROCHLORIDE [Concomitant]
     Active Substance: CYCLOBENZAPRINE HYDROCHLORIDE
  5. ACETAMINOPHEN\HYDROCODONE [Concomitant]
     Active Substance: ACETAMINOPHEN\HYDROCODONE
  6. Ipratropium-Albuterol Inhalation [Concomitant]
  7. MELATONIN [Concomitant]
     Active Substance: MELATONIN
  8. NEULASTA [Concomitant]
     Active Substance: PEGFILGRASTIM
  9. OMEPRAZOLE [Concomitant]
     Active Substance: OMEPRAZOLE
  10. PRAVASTATIN [Concomitant]
     Active Substance: PRAVASTATIN
  11. SINGULAIR [Concomitant]
     Active Substance: MONTELUKAST SODIUM
  12. ZYRTEC [Concomitant]
     Active Substance: CETIRIZINE HYDROCHLORIDE

REACTIONS (2)
  - Blood pressure increased [None]
  - Cardiac flutter [None]
